FAERS Safety Report 7461214-X (Version None)
Quarter: 2011Q2

REPORT INFORMATION
  Report Type: 
  Country: None (occurrence: None)
  Receive Date: 20110505
  Receipt Date: 20110426
  Transmission Date: 20111010
  Serious: Yes (Hospitalization)
  Sender: FDA-Public Use
  Company Number: FR-ASTRAZENECA-2011SE24990

PATIENT
  Age: 29204 Day
  Sex: Female

DRUGS (7)
  1. OFLOCET [Suspect]
     Indication: ENTEROBACTER INFECTION
     Route: 065
     Dates: start: 20110310, end: 20110313
  2. TERCIAN [Suspect]
     Route: 048
  3. TEMESTA [Suspect]
     Route: 048
     Dates: end: 20110313
  4. EFFEXOR [Suspect]
     Route: 048
  5. NEXIUM [Suspect]
     Route: 048
  6. NOCTRAN [Suspect]
     Route: 048
     Dates: end: 20110317
  7. SURMONTIL [Suspect]
     Route: 048
     Dates: end: 20110317

REACTIONS (2)
  - DYSARTHRIA [None]
  - CONFUSIONAL STATE [None]
